FAERS Safety Report 24086300 (Version 1)
Quarter: 2024Q3

REPORT INFORMATION
  Report Type: Spontaneous
  Country: HK (occurrence: HK)
  Receive Date: 20240712
  Receipt Date: 20240712
  Transmission Date: 20241017
  Serious: Yes (Other)
  Sender: INCYTE
  Company Number: HK-002147023-NVSC2024HK138477

PATIENT

DRUGS (1)
  1. RUXOLITINIB [Suspect]
     Active Substance: RUXOLITINIB
     Indication: Myelofibrosis
     Dosage: 20 MG, BID
     Route: 065
     Dates: start: 202302

REACTIONS (11)
  - Arthritis bacterial [Unknown]
  - Cytomegalovirus infection [Unknown]
  - Pneumonia bacterial [Unknown]
  - Escherichia sepsis [Unknown]
  - Escherichia urinary tract infection [Unknown]
  - Enterobacter pneumonia [Unknown]
  - Lymphocyte count decreased [Unknown]
  - Urinary tract infection [Unknown]
  - Herpes zoster infection neurological [Unknown]
  - Pneumonia [Unknown]
  - Anaemia [Unknown]

NARRATIVE: CASE EVENT DATE: 20230301
